FAERS Safety Report 9115864 (Version 1)
Quarter: 2013Q1

REPORT INFORMATION
  Report Type: Spontaneous
  Country: FR (occurrence: FR)
  Receive Date: 20130225
  Receipt Date: 20130225
  Transmission Date: 20140127
  Serious: Yes (Hospitalization, Other)
  Sender: FDA-Public Use
  Company Number: FR-ELI_LILLY_AND_COMPANY-FR201212001535

PATIENT
  Sex: Male

DRUGS (8)
  1. ALIMTA [Suspect]
     Dosage: UNK
     Dates: start: 20110407
  2. ONDANSETRON [Concomitant]
     Indication: PREMEDICATION
     Dosage: UNK
     Route: 042
     Dates: start: 20101108, end: 20120920
  3. METHYLPREDNISOLONE [Concomitant]
     Indication: PREMEDICATION
     Dosage: UNK
     Route: 042
     Dates: start: 20101108, end: 20120920
  4. TAHOR [Concomitant]
     Dosage: 20 MG, UNK
  5. KARDEGIC [Concomitant]
     Dosage: 160 MG, UNK
  6. ZANIDIP [Concomitant]
     Dosage: 10 MG, UNK
  7. AMIODARONE [Concomitant]
     Dosage: 100 MG, UNK
  8. INEXIUM [Concomitant]

REACTIONS (4)
  - Sepsis [Unknown]
  - Bone marrow failure [Unknown]
  - Cellulitis gangrenous [Unknown]
  - Panniculitis [Recovering/Resolving]
